FAERS Safety Report 9207954 (Version 1)
Quarter: 2013Q2

REPORT INFORMATION
  Report Type: Spontaneous
  Country: IT (occurrence: IT)
  Receive Date: 20130403
  Receipt Date: 20130403
  Transmission Date: 20140414
  Serious: Yes (Hospitalization)
  Sender: FDA-Public Use
  Company Number: IT-TEVA-395054ISR

PATIENT
  Age: 71 Year
  Sex: Female

DRUGS (3)
  1. LEVOFLOXACIN [Suspect]
     Indication: PHLEBITIS
     Dosage: 500 MILLIGRAM DAILY;
     Route: 048
     Dates: start: 20130305, end: 20130312
  2. MUSCORIL [Concomitant]
  3. SODIO ALENDRONATO TRIIDRATO [Concomitant]

REACTIONS (2)
  - Tendonitis [Recovering/Resolving]
  - Asthenia [Recovering/Resolving]
